FAERS Safety Report 25467111 (Version 1)
Quarter: 2025Q2

REPORT INFORMATION
  Report Type: Report from Study
  Country: US (occurrence: US)
  Receive Date: 20250623
  Receipt Date: 20250623
  Transmission Date: 20250716
  Serious: Yes (Other)
  Sender: ACADIA PHARMACEUTICALS
  Company Number: US-ACADIA PHARMACEUTICALS INC.-ACA-2025-PIM-007332

PATIENT
  Sex: Male

DRUGS (9)
  1. NUPLAZID [Suspect]
     Active Substance: PIMAVANSERIN TARTRATE
     Indication: Parkinson^s disease psychosis
     Dosage: 34 MILLIGRAM, QD
     Route: 048
     Dates: start: 20250326
  2. CARBIDOPA\LEVODOPA [Concomitant]
     Active Substance: CARBIDOPA\LEVODOPA
  3. DROXIDOPA [Concomitant]
     Active Substance: DROXIDOPA
  4. FLUDROCORTISONE [Concomitant]
     Active Substance: FLUDROCORTISONE
  5. MIDODRINE [Concomitant]
     Active Substance: MIDODRINE
  6. NORTHERA [Concomitant]
     Active Substance: DROXIDOPA
  7. RASAGILINE [Concomitant]
     Active Substance: RASAGILINE
  8. RYTARY [Concomitant]
     Active Substance: CARBIDOPA\LEVODOPA
  9. ZIPSOR [Concomitant]
     Active Substance: DICLOFENAC POTASSIUM

REACTIONS (3)
  - Hallucination [Unknown]
  - Confusional state [Unknown]
  - Oedema peripheral [Unknown]
